FAERS Safety Report 9525017 (Version 3)
Quarter: 2014Q2

REPORT INFORMATION
  Report Type: Spontaneous
  Country: US (occurrence: None)
  Receive Date: 20130912
  Receipt Date: 20140507
  Transmission Date: 20141212
  Serious: No
  Sender: FDA-Public Use
  Company Number: 2013-US-000076

PATIENT
  Age: 53 Year
  Sex: Female

DRUGS (1)
  1. XYREM (SODIUM OXYBATE) ORAL SOLUTION, 500MG/ML [Suspect]
     Indication: NARCOLEPSY
     Route: 048
     Dates: start: 20120731, end: 2012

REACTIONS (14)
  - Bipolar disorder [None]
  - Psychomotor hyperactivity [None]
  - Feeling abnormal [None]
  - Drug administration error [None]
  - Abasia [None]
  - Speech disorder [None]
  - Paraesthesia [None]
  - Pain [None]
  - Enuresis [None]
  - Nausea [None]
  - Muscle spasms [None]
  - Hangover [None]
  - Paraesthesia [None]
  - Movement disorder [None]
